FAERS Safety Report 13053503 (Version 1)
Quarter: 2016Q4

REPORT INFORMATION
  Report Type: Spontaneous
  Country: US (occurrence: US)
  Receive Date: 20161222
  Receipt Date: 20161222
  Transmission Date: 20170207
  Serious: No
  Sender: FDA-Public Use
  Company Number: US-AUROBINDO-AUR-APU-2016-09931

PATIENT
  Age: 28 Year
  Sex: Female

DRUGS (1)
  1. DEXAMFETAMINE+AMFETAMINE TABLET [Suspect]
     Active Substance: AMPHETAMINE\DEXTROAMPHETAMINE
     Indication: ATTENTION DEFICIT/HYPERACTIVITY DISORDER
     Dosage: UNK
     Route: 065

REACTIONS (10)
  - Disturbance in attention [Unknown]
  - Nausea [Unknown]
  - Dizziness [Unknown]
  - Somnolence [Unknown]
  - Micturition disorder [Unknown]
  - Hyperhidrosis [Unknown]
  - Vision blurred [Unknown]
  - Palpitations [Unknown]
  - Headache [Unknown]
  - Diarrhoea [Unknown]
